FAERS Safety Report 5019303-5 (Version None)
Quarter: 2006Q2

REPORT INFORMATION
  Report Type: 
  Country: None (occurrence: None)
  Receive Date: 20060606
  Receipt Date: 20060426
  Transmission Date: 20061013
  Serious: Yes (Hospitalization)
  Sender: FDA-Public Use
  Company Number: FR-ROCHE-446061

PATIENT
  Age: 72 Year
  Sex: Male

DRUGS (6)
  1. CELLCEPT [Suspect]
     Indication: DRUG USE FOR UNKNOWN INDICATION
     Dosage: FOUR DOSES TAKEN EVERY DAY.
     Route: 048
  2. TOPALGIC LP (TRAMADOL) [Suspect]
     Indication: DRUG USE FOR UNKNOWN INDICATION
     Dosage: TWO DOSES TAKEN EVERY DAY.
     Route: 048
  3. MOPRAL [Suspect]
     Indication: DRUG USE FOR UNKNOWN INDICATION
     Route: 048
  4. MOTILIUM [Suspect]
     Indication: DRUG USE FOR UNKNOWN INDICATION
     Dosage: THREE DOSES TAKEN EVERY DAY.
     Route: 048
  5. MESTINON [Suspect]
     Indication: DRUG USE FOR UNKNOWN INDICATION
     Dosage: FOUR DOSES TAKEN EVERY DAY.
     Route: 048
  6. CORTANCYL [Suspect]
     Indication: DRUG USE FOR UNKNOWN INDICATION
     Route: 048

REACTIONS (1)
  - RETROPERITONEAL FIBROSIS [None]
